FAERS Safety Report 5291317-X (Version None)
Quarter: 2007Q2

REPORT INFORMATION
  Report Type: 
  Country: None (occurrence: None)
  Receive Date: 20070409
  Receipt Date: 20070329
  Transmission Date: 20071010
  Serious: Yes (Other)
  Sender: FDA-Public Use
  Company Number: CA-PFIZER INC-2007027046

PATIENT
  Sex: Female

DRUGS (4)
  1. NEURONTIN [Suspect]
     Indication: DIABETIC NEUROPATHY
     Route: 048
  2. LYRICA [Suspect]
     Indication: DIABETIC NEUROPATHY
     Route: 048
     Dates: start: 20060101
  3. CELEBREX [Concomitant]
  4. ASPIRIN [Concomitant]

REACTIONS (1)
  - INTERSTITIAL LUNG DISEASE [None]
